FAERS Safety Report 5319763-6 (Version None)
Quarter: 2007Q1

REPORT INFORMATION
  Report Type: 
  Country: None (occurrence: None)
  Receive Date: 20070205
  Receipt Date: 20051209
  Transmission Date: 20070707
  Serious: Yes (Other)
  Sender: FDA-Public Use
  Company Number: PHEH2005US11436

PATIENT
  Age: 10 Year
  Sex: Male
  Weight: 32.7 kg

DRUGS (1)
  1. RITALIN LA [Suspect]
     Indication: ATTENTION DEFICIT/HYPERACTIVITY DISORDER
     Dosage: 60 MG, QAM, ORAL
     Route: 048
     Dates: start: 20050101, end: 20050922

REACTIONS (3)
  - FEAR [None]
  - HALLUCINATION, VISUAL [None]
  - PARANOIA [None]
